FAERS Safety Report 22083060 (Version 1)
Quarter: 2023Q1

REPORT INFORMATION
  Report Type: Spontaneous
  Country: US (occurrence: US)
  Receive Date: 20230310
  Receipt Date: 20230310
  Transmission Date: 20230418
  Serious: No
  Sender: FDA-Public Use
  Company Number: US-GSK-US2023AMR035295

PATIENT
  Age: 28 Year
  Sex: Male

DRUGS (1)
  1. VALACYCLOVIR [Suspect]
     Active Substance: VALACYCLOVIR HYDROCHLORIDE
     Indication: Herpes simplex
     Dosage: 1 DF, BID 1 TABLET TWICE A DAY FOR 10 DAYS
     Dates: start: 202206

REACTIONS (1)
  - Product dose omission issue [Recovered/Resolved]
